FAERS Safety Report 9156550 (Version 1)
Quarter: 2013Q1

REPORT INFORMATION
  Report Type: Spontaneous
  Country: US (occurrence: None)
  Receive Date: 20130308
  Receipt Date: 20130308
  Transmission Date: 20140127
  Serious: Yes (Disabling)
  Sender: FDA-Public Use
  Company Number: None

PATIENT
  Age: 58 Year
  Sex: Female
  Weight: 68.04 kg

DRUGS (1)
  1. TYSABRI [Suspect]
     Route: 042
     Dates: start: 20130202, end: 20130202

REACTIONS (5)
  - Oropharyngeal pain [None]
  - Dyspnoea [None]
  - Wheezing [None]
  - Chills [None]
  - Confusional state [None]
